FAERS Safety Report 16044923 (Version 1)
Quarter: 2019Q1

REPORT INFORMATION
  Report Type: Report from Study
  Country: IT (occurrence: IT)
  Receive Date: 20190307
  Receipt Date: 20190307
  Transmission Date: 20190418
  Serious: Yes (Other)
  Sender: FDA-Public Use
  Company Number: IT-ACCORD-110741

PATIENT
  Age: 67 Year
  Sex: Female

DRUGS (7)
  1. GEMCITABINE ACCORD [Suspect]
     Active Substance: GEMCITABINE HYDROCHLORIDE
     Indication: PANCREATIC CARCINOMA
     Route: 042
     Dates: start: 20180207, end: 20180917
  2. FOLINA [Concomitant]
     Active Substance: FOLIC ACID
  3. GLIBOMET [Concomitant]
     Active Substance: GLYBURIDE\METFORMIN HYDROCHLORIDE
     Dosage: 400 MG 2,5 MG
  4. VALPRESSION [Concomitant]
     Active Substance: VALSARTAN
  5. SELEPARINA [Concomitant]
     Active Substance: NADROPARIN CALCIUM
  6. ABRAXANE [Suspect]
     Active Substance: PACLITAXEL
     Indication: PANCREATIC CARCINOMA
     Route: 042
     Dates: start: 20180207, end: 20180917
  7. ZUGLIMET [Concomitant]
     Active Substance: METFORMIN HYDROCHLORIDE

REACTIONS (2)
  - Leukopenia [Recovered/Resolved]
  - Neutropenia [Recovered/Resolved]

NARRATIVE: CASE EVENT DATE: 20180808
